FAERS Safety Report 20037805 (Version 6)
Quarter: 2023Q2

REPORT INFORMATION
  Report Type: Spontaneous
  Country: JP (occurrence: JP)
  Receive Date: 20211105
  Receipt Date: 20230529
  Transmission Date: 20230722
  Serious: Yes (Hospitalization, Other)
  Sender: FDA-Public Use
  Company Number: JP-ONO-2021JP027360

PATIENT
  Age: 57 Year
  Sex: Male
  Weight: 59.8 kg

DRUGS (5)
  1. OPDIVO [Suspect]
     Active Substance: NIVOLUMAB
     Indication: Non-small cell lung cancer recurrent
     Dosage: 360 MILLIGRAM, Q3WK
     Route: 041
     Dates: start: 20210427, end: 20210915
  2. OPDIVO [Suspect]
     Active Substance: NIVOLUMAB
     Dosage: 360 MILLIGRAM
     Route: 041
     Dates: start: 20211110
  3. YERVOY [Suspect]
     Active Substance: IPILIMUMAB
     Indication: Non-small cell lung cancer recurrent
     Dosage: 60 MILLIGRAM, Q6WK
     Route: 041
     Dates: start: 20210427, end: 20210915
  4. PEMETREXED [Concomitant]
     Active Substance: PEMETREXED
     Indication: Non-small cell lung cancer recurrent
     Dosage: 500 MILLIGRAM/SQ. METER
     Dates: start: 20210427, end: 20210427
  5. CARBOPLATIN [Concomitant]
     Active Substance: CARBOPLATIN
     Indication: Non-small cell lung cancer recurrent
     Dosage: UNK
     Dates: start: 20210427, end: 20210427

REACTIONS (3)
  - Pituitary haemorrhage [Recovering/Resolving]
  - Secondary adrenocortical insufficiency [Recovering/Resolving]
  - Hypopituitarism [Recovering/Resolving]

NARRATIVE: CASE EVENT DATE: 20210924
